FAERS Safety Report 19020860 (Version 2)
Quarter: 2021Q1

REPORT INFORMATION
  Report Type: Spontaneous
  Country: PT (occurrence: PT)
  Receive Date: 20210317
  Receipt Date: 20210318
  Transmission Date: 20210420
  Serious: Yes (Disabling)
  Sender: FDA-Public Use
  Company Number: PT-GILEAD-2021-0521425

PATIENT
  Age: 75 Year
  Sex: Male

DRUGS (12)
  1. VEKLURY [Suspect]
     Active Substance: REMDESIVIR
     Dosage: 100 MG, QD ^D2? 100 MG^
     Route: 042
     Dates: start: 20210219, end: 20210220
  2. OLANZAPINE. [Concomitant]
     Active Substance: OLANZAPINE
     Dosage: 5 MG, QD; ^17 A 19 2,5 MG/DIA, 19 A 20 5 MG/DIA^
     Dates: start: 20210217, end: 20210220
  3. HALOPERIDOL. [Concomitant]
     Active Substance: HALOPERIDOL
     Dosage: 5 MG, PRN
     Route: 030
     Dates: start: 20210219
  4. VEKLURY [Suspect]
     Active Substance: REMDESIVIR
     Indication: COVID-19 PNEUMONIA
     Dosage: 200 MG, QD ^D1 ? 200 MG (DOSE DE CARGA)^
     Route: 042
     Dates: start: 20210218, end: 20210218
  5. VALPROIC ACID. [Concomitant]
     Active Substance: VALPROIC ACID
     Dosage: 750 MG, QD
     Route: 048
     Dates: start: 20210219
  6. ENOXAPARIN SODIUM. [Concomitant]
     Active Substance: ENOXAPARIN SODIUM
     Dosage: 40 MG, QD
     Dates: start: 20210217
  7. OXAZEPAM. [Concomitant]
     Active Substance: OXAZEPAM
     Dosage: 45 MG, QD
     Route: 048
     Dates: start: 20210219
  8. METAMIZOLE MAGNESIUM [Concomitant]
     Active Substance: METAMIZOLE MAGNESIUM
     Dosage: 575 MG, PRN
     Route: 048
     Dates: start: 20210217
  9. ARIPIPRAZOLE. [Concomitant]
     Active Substance: ARIPIPRAZOLE
     Dosage: 10 MG, QD
     Dates: start: 20210217, end: 20210220
  10. PARACETAMOL [Concomitant]
     Active Substance: ACETAMINOPHEN
     Dosage: 500 MG, PRN
     Route: 048
     Dates: start: 20210217
  11. BIPERIDEN [Concomitant]
     Active Substance: BIPERIDEN
     Dosage: 2.5 MG
     Dates: start: 20210220
  12. QUETIAPINE. [Concomitant]
     Active Substance: QUETIAPINE
     Dosage: 25 MG, PRN
     Route: 048
     Dates: start: 20210217, end: 20210219

REACTIONS (3)
  - Tremor [Recovering/Resolving]
  - Dysarthria [Recovering/Resolving]
  - Dyskinesia [Recovering/Resolving]

NARRATIVE: CASE EVENT DATE: 20210219
